FAERS Safety Report 20377466 (Version 1)
Quarter: 2022Q1

REPORT INFORMATION
  Report Type: Spontaneous
  Country: FR (occurrence: FR)
  Receive Date: 20220126
  Receipt Date: 20220126
  Transmission Date: 20220423
  Serious: Yes (Other)
  Sender: FDA-Public Use
  Company Number: None

PATIENT
  Age: 59 Year
  Sex: Female
  Weight: 66.5 kg

DRUGS (4)
  1. LOVENOX [Suspect]
     Active Substance: ENOXAPARIN SODIUM
     Indication: Thrombosis prophylaxis
     Dosage: 8000 IU
     Route: 058
     Dates: start: 20211219, end: 20211222
  2. VORICONAZOLE [Suspect]
     Active Substance: VORICONAZOLE
     Indication: Bronchopulmonary aspergillosis
     Route: 048
     Dates: start: 20211207, end: 20211221
  3. AMOXICILLIN [Suspect]
     Active Substance: AMOXICILLIN
     Indication: Lung disorder
     Dosage: 3 G
     Route: 041
     Dates: start: 20211209, end: 20211212
  4. LORAZEPAM [Suspect]
     Active Substance: LORAZEPAM
     Indication: Anxiety
     Route: 048
     Dates: start: 20211216, end: 20211222

REACTIONS (3)
  - Hepatocellular injury [Recovered/Resolved]
  - Toxic skin eruption [Recovered/Resolved]
  - Eosinophilia [Recovered/Resolved]

NARRATIVE: CASE EVENT DATE: 20211220
